FAERS Safety Report 7826198-0 (Version None)
Quarter: 2011Q4

REPORT INFORMATION
  Report Type: 
  Country: None (occurrence: None)
  Receive Date: 20111020
  Receipt Date: 20111011
  Transmission Date: 20120403
  Serious: Yes (Other)
  Sender: FDA-Public Use
  Company Number: BE-BIOGENIDEC-2011BI038823

PATIENT
  Age: 59 Year
  Sex: Female

DRUGS (11)
  1. TARGINACT [Concomitant]
     Route: 048
  2. LEVOTHYROXINE SODIUM [Concomitant]
     Route: 048
  3. PROGYNOVA [Concomitant]
     Route: 048
  4. BROMAZEPAM [Concomitant]
     Route: 048
  5. TRAZODONE HCL [Concomitant]
     Route: 048
  6. URICRAN [Concomitant]
     Route: 048
  7. LIORESAL [Concomitant]
     Route: 048
  8. TARGINACT [Concomitant]
     Route: 048
  9. TYSABRI [Suspect]
     Indication: RELAPSING-REMITTING MULTIPLE SCLEROSIS
     Route: 042
     Dates: start: 20080929, end: 20110802
  10. VESICARE [Concomitant]
     Route: 048
  11. EFFEXOR [Concomitant]
     Route: 048

REACTIONS (1)
  - BREAST CANCER [None]
